FAERS Safety Report 25689403 (Version 1)
Quarter: 2025Q3

REPORT INFORMATION
  Report Type: Report from Study
  Country: US (occurrence: US)
  Receive Date: 20250818
  Receipt Date: 20250818
  Transmission Date: 20251021
  Serious: No
  Sender: SUNOVION
  Company Number: US-SMPA-2025SPA010371

PATIENT
  Age: 72 Year
  Sex: Male

DRUGS (7)
  1. ORGOVYX [Suspect]
     Active Substance: RELUGOLIX
     Indication: Prostate cancer
     Route: 048
     Dates: start: 20250609, end: 20250609
  2. ORGOVYX [Suspect]
     Active Substance: RELUGOLIX
     Route: 048
  3. ELIQUIS [Concomitant]
     Active Substance: APIXABAN
  4. FINASTERIDE [Concomitant]
     Active Substance: FINASTERIDE
  5. METOPROLOL [Concomitant]
     Active Substance: METOPROLOL
  6. SILDENAFIL [Concomitant]
     Active Substance: SILDENAFIL
  7. TAMSULOSIN [Concomitant]
     Active Substance: TAMSULOSIN

REACTIONS (5)
  - Micturition urgency [Unknown]
  - Pollakiuria [Unknown]
  - Dysuria [Unknown]
  - Cystitis [Unknown]
  - Feeling hot [Unknown]
